FAERS Safety Report 9353335 (Version 1)
Quarter: 2013Q2

REPORT INFORMATION
  Report Type: Spontaneous
  Country: US (occurrence: None)
  Receive Date: 20130617
  Receipt Date: 20130617
  Transmission Date: 20140414
  Serious: No
  Sender: FDA-Public Use
  Company Number: None

PATIENT
  Age: 59 Year
  Sex: Male
  Weight: 95 kg

DRUGS (2)
  1. TELAPREVIR [Suspect]
     Indication: HEPATITIS C
     Dosage: MG PO
     Route: 048
     Dates: start: 20130401, end: 20130524
  2. PEGINTERFERON [Suspect]
     Indication: HEPATITIS C
     Dosage: ML
     Dates: start: 20130304, end: 20130524

REACTIONS (5)
  - Thrombocytopenia [None]
  - Anaemia [None]
  - Rash [None]
  - Skin lesion [None]
  - Pruritus [None]
